FAERS Safety Report 17505392 (Version 1)
Quarter: 2020Q1

REPORT INFORMATION
  Report Type: Spontaneous
  Country: US (occurrence: US)
  Receive Date: 20200225
  Receipt Date: 20200225
  Transmission Date: 20200409
  Serious: No
  Sender: FDA-Public Use
  Company Number: None

PATIENT
  Age: 14 Year
  Sex: Female

DRUGS (1)
  1. AFINITOR [Suspect]
     Active Substance: EVEROLIMUS
     Indication: LENNOX-GASTAUT SYNDROME
     Route: 048
     Dates: start: 20190907

REACTIONS (5)
  - Respiratory arrest [None]
  - Product substitution issue [None]
  - Generalised tonic-clonic seizure [None]
  - Choking [None]
  - Bronchospasm [None]

NARRATIVE: CASE EVENT DATE: 202001
